FAERS Safety Report 4904503-2 (Version None)
Quarter: 2006Q1

REPORT INFORMATION
  Report Type: 
  Country: None (occurrence: None)
  Receive Date: 20060208
  Receipt Date: 20050912
  Transmission Date: 20060701
  Serious: No
  Sender: FDA-Public Use
  Company Number: US-GLAXOSMITHKLINE-A0573894A

PATIENT
  Sex: Female

DRUGS (6)
  1. PAXIL [Suspect]
     Indication: OBSESSIVE-COMPULSIVE DISORDER
     Dosage: 30MG PER DAY
     Route: 048
     Dates: start: 20050620, end: 20050801
  2. PAROXETINE HYDROCHLORIDE [Suspect]
     Indication: OBSESSIVE-COMPULSIVE DISORDER
     Dosage: 30MG PER DAY
     Route: 048
     Dates: start: 20050901
  3. METFORMIN HYDROCHLORIDE [Concomitant]
  4. ATENOLOL [Concomitant]
  5. LISINOPRIL [Concomitant]
  6. IRON [Concomitant]

REACTIONS (1)
  - DRUG INEFFECTIVE [None]
